FAERS Safety Report 14941845 (Version 1)
Quarter: 2018Q2

REPORT INFORMATION
  Report Type: Spontaneous
  Country: US (occurrence: US)
  Receive Date: 20180527
  Receipt Date: 20180527
  Transmission Date: 20180711
  Serious: No
  Sender: FDA-Public Use
  Company Number: US-JNJFOC-20180520188

PATIENT
  Age: 45 Year
  Sex: Female
  Weight: 55.79 kg

DRUGS (1)
  1. ELMIRON [Suspect]
     Active Substance: PENTOSAN POLYSULFATE SODIUM
     Indication: CYSTITIS INTERSTITIAL
     Route: 048
     Dates: start: 20180505

REACTIONS (4)
  - Pollakiuria [Not Recovered/Not Resolved]
  - Drug ineffective [Unknown]
  - Weight increased [Not Recovered/Not Resolved]
  - Decreased appetite [Not Recovered/Not Resolved]

NARRATIVE: CASE EVENT DATE: 20180505
